FAERS Safety Report 8463838-X (Version None)
Quarter: 2012Q2

REPORT INFORMATION
  Report Type: 
  Country: None (occurrence: None)
  Receive Date: 20120625
  Receipt Date: 20120614
  Transmission Date: 20120825
  Serious: Yes (Hospitalization, Other)
  Sender: FDA-Public Use
  Company Number: US-MYLANLABS-2009AC000076

PATIENT
  Age: 81 Year
  Sex: Female

DRUGS (54)
  1. TOPROL-XL [Concomitant]
  2. CENTRUM [Concomitant]
  3. METFORMIN HCL [Concomitant]
  4. COLACE [Concomitant]
  5. REGLAN [Concomitant]
  6. COREG [Concomitant]
  7. LOPRESSOR [Concomitant]
  8. PAXIL [Concomitant]
  9. ASPIRIN [Concomitant]
  10. DULCOLAX [Concomitant]
  11. ELAVIL [Concomitant]
  12. PENICILLIN [Concomitant]
  13. PROTONIX [Concomitant]
  14. NITROSTAT [Concomitant]
     Indication: CHEST PAIN
  15. CELEXA [Concomitant]
  16. NASONEX [Concomitant]
  17. FERROUS SULFATE TAB [Concomitant]
  18. PERPHENAZINE [Concomitant]
  19. DIGOXIN [Suspect]
     Route: 048
     Dates: start: 19970605, end: 20080426
  20. VALIUM [Concomitant]
  21. ZOCOR [Concomitant]
  22. CIPROFLOXACIN HCL [Concomitant]
  23. COUMADIN [Concomitant]
  24. NITROGLYCERIN [Concomitant]
  25. NASONEX [Concomitant]
  26. POTASSIUM ACETATE [Concomitant]
  27. PRILOSEC [Concomitant]
  28. MEGACE [Concomitant]
  29. PAXIL [Concomitant]
  30. MULTI-VITAMINS [Concomitant]
  31. GLUCOTROL [Concomitant]
  32. ALDOMET [Concomitant]
  33. AVANDIA [Concomitant]
  34. LORTAB [Concomitant]
  35. XANAX [Concomitant]
  36. PROVENTIL [Concomitant]
  37. GLUCOPHAGE [Concomitant]
  38. PLAVIX [Concomitant]
  39. NIFEREX /00023531/ [Concomitant]
  40. SIMVASTATIN [Concomitant]
  41. HYDROCODONE [Concomitant]
  42. ETRAFON [Concomitant]
  43. FLAGYL [Concomitant]
  44. FLUPHENAZINE HCL [Concomitant]
  45. OCUVITE /01053801/ [Concomitant]
  46. METAMUCIL-2 [Concomitant]
  47. GLIPIZIDE [Concomitant]
  48. SYNTHROID [Concomitant]
  49. AMBIEN [Concomitant]
  50. ALTACE [Concomitant]
  51. LASIX [Concomitant]
  52. RAMIPRIL [Concomitant]
  53. ALDACTONE [Concomitant]
  54. CARAFATE [Concomitant]

REACTIONS (66)
  - CHEST PAIN [None]
  - HYPERHIDROSIS [None]
  - DYSPNOEA [None]
  - CORONARY ARTERY DISEASE [None]
  - CATARACT [None]
  - CARDIOMYOPATHY [None]
  - PYREXIA [None]
  - OEDEMA PERIPHERAL [None]
  - VOMITING [None]
  - FEELING ABNORMAL [None]
  - HYSTERECTOMY [None]
  - TOXICITY TO VARIOUS AGENTS [None]
  - ANGINA PECTORIS [None]
  - ECHOCARDIOGRAM ABNORMAL [None]
  - HEADACHE [None]
  - ARTHRALGIA [None]
  - INJURY [None]
  - BACK PAIN [None]
  - BREATH SOUNDS ABNORMAL [None]
  - CHEST DISCOMFORT [None]
  - PAIN IN EXTREMITY [None]
  - CONSTIPATION [None]
  - DIZZINESS [None]
  - CORONARY ANGIOPLASTY [None]
  - CARDIAC FLUTTER [None]
  - ABDOMINAL PAIN [None]
  - CHEST X-RAY ABNORMAL [None]
  - CORONARY ARTERIAL STENT INSERTION [None]
  - GASTRIC ULCER [None]
  - GASTRITIS [None]
  - FEAR [None]
  - STENT PLACEMENT [None]
  - LEFT VENTRICULAR HYPERTROPHY [None]
  - CARDIAC FAILURE [None]
  - CATARACT OPERATION [None]
  - MALAISE [None]
  - PANCREATIC PSEUDOCYST [None]
  - ANXIETY [None]
  - TRICUSPID VALVE INCOMPETENCE [None]
  - MITRAL VALVE INCOMPETENCE [None]
  - CARDIAC PACEMAKER INSERTION [None]
  - KNEE ARTHROPLASTY [None]
  - VASCULAR CALCIFICATION [None]
  - PERICARDIAL EFFUSION [None]
  - CARDIOACTIVE DRUG LEVEL INCREASED [None]
  - FATIGUE [None]
  - HYPOCALCAEMIA [None]
  - PLEURAL EFFUSION [None]
  - ILL-DEFINED DISORDER [None]
  - PALPITATIONS [None]
  - ASCITES [None]
  - COMPUTERISED TOMOGRAM ABNORMAL [None]
  - CARDIOMEGALY [None]
  - CHOLELITHIASIS [None]
  - OCCULT BLOOD POSITIVE [None]
  - DIARRHOEA [None]
  - ECONOMIC PROBLEM [None]
  - ASTHENIA [None]
  - NAUSEA [None]
  - CATHETERISATION CARDIAC [None]
  - CHOLECYSTECTOMY [None]
  - ATELECTASIS [None]
  - ANAEMIA MACROCYTIC [None]
  - CATHETERISATION CARDIAC ABNORMAL [None]
  - DEHYDRATION [None]
  - LABORATORY TEST ABNORMAL [None]
